FAERS Safety Report 5950225-9 (Version None)
Quarter: 2008Q4

REPORT INFORMATION
  Report Type: 
  Country: None (occurrence: None)
  Receive Date: 20081112
  Receipt Date: 20081111
  Transmission Date: 20090506
  Serious: Yes (Other)
  Sender: FDA-Public Use
  Company Number: D0058017A

PATIENT
  Age: 44 Year
  Sex: Female

DRUGS (4)
  1. REQUIP [Suspect]
     Indication: RESTLESS LEGS SYNDROME
     Dosage: 2MG PER DAY
     Route: 065
     Dates: start: 20080501
  2. RESTEX [Suspect]
     Indication: RESTLESS LEGS SYNDROME
     Dosage: 125MG PER DAY
     Route: 065
     Dates: start: 20070901
  3. CITALOPRAM HYDROBROMIDE [Concomitant]
     Dosage: 10MG PER DAY
     Route: 065
     Dates: start: 20080601
  4. OMEPRAZOLE [Concomitant]
     Dosage: 40MG PER DAY
     Route: 065

REACTIONS (4)
  - ANOREXIA [None]
  - NAUSEA [None]
  - SYNCOPE [None]
  - WEIGHT DECREASED [None]
